FAERS Safety Report 5039366-0 (Version None)
Quarter: 2006Q2

REPORT INFORMATION
  Report Type: 
  Country: None (occurrence: None)
  Receive Date: 20060629
  Receipt Date: 20060620
  Transmission Date: 20061013
  Serious: Yes (Other)
  Sender: FDA-Public Use
  Company Number: PHMT2006CA01412

PATIENT
  Age: 70 Year
  Sex: Male

DRUGS (1)
  1. LAMISIL [Suspect]
     Indication: ONYCHOMYCOSIS
     Dosage: 250 MG
     Route: 048
     Dates: start: 20040801, end: 20040901

REACTIONS (8)
  - EATING DISORDER [None]
  - EMOTIONAL DISTRESS [None]
  - EYE DISORDER [None]
  - FATIGUE [None]
  - IMPAIRED DRIVING ABILITY [None]
  - IMPAIRED SELF-CARE [None]
  - NIGHT BLINDNESS [None]
  - ONYCHOMADESIS [None]
